FAERS Safety Report 21714225 (Version 1)
Quarter: 2022Q4

REPORT INFORMATION
  Report Type: Spontaneous
  Country: US (occurrence: None)
  Receive Date: 20221209
  Receipt Date: 20221209
  Transmission Date: 20230112
  Serious: No
  Sender: FDA-Public Use
  Company Number: None

PATIENT
  Age: 82 Year
  Sex: Male
  Weight: 72.08 kg

DRUGS (6)
  1. SUNITINIB MALEATE [Suspect]
     Active Substance: SUNITINIB MALEATE
     Indication: Renal cancer
     Dosage: FREQUENCY : EVERY OTHER DAY;?
     Route: 048
     Dates: end: 20221202
  2. NORVASC [Concomitant]
     Active Substance: AMLODIPINE BESYLATE
  3. POTASSIUM CITRATE [Concomitant]
     Active Substance: POTASSIUM CITRATE
  4. VITAMIN B12 [Concomitant]
     Active Substance: CYANOCOBALAMIN
  5. ALLOPURINOL [Concomitant]
     Active Substance: ALLOPURINOL
  6. LUTEIN 20 [Concomitant]

REACTIONS (1)
  - Drug ineffective [None]
